FAERS Safety Report 9006638 (Version 3)
Quarter: 2013Q1

REPORT INFORMATION
  Report Type: Spontaneous
  Country: FI (occurrence: FI)
  Receive Date: 20130110
  Receipt Date: 20130205
  Transmission Date: 20140127
  Serious: Yes (Hospitalization, Other)
  Sender: FDA-Public Use
  Company Number: FI-ELI_LILLY_AND_COMPANY-FI201301000218

PATIENT
  Age: 64 Year
  Sex: Male

DRUGS (3)
  1. ZYPADHERA [Suspect]
     Indication: BIPOLAR DISORDER
     Dosage: 405 MG, MONTHLY (1/M)
     Dates: start: 20120419
  2. ZYPADHERA [Suspect]
     Dosage: 300 MG, MONTHLY (1/M)
  3. LITHIUM [Concomitant]
     Indication: BIPOLAR DISORDER
     Dosage: 600 MG, EACH EVENING
     Dates: start: 20120507

REACTIONS (10)
  - Loss of consciousness [Recovered/Resolved]
  - Fall [Recovered/Resolved]
  - Restlessness [Unknown]
  - Stupor [Unknown]
  - Confusional state [Unknown]
  - Aggression [Unknown]
  - Tremor [Unknown]
  - Toxicity to various agents [Unknown]
  - Pyrexia [Unknown]
  - Tachycardia [Unknown]
